FAERS Safety Report 7004694-6 (Version None)
Quarter: 2010Q3

REPORT INFORMATION
  Report Type: 
  Country: None (occurrence: None)
  Receive Date: 20100921
  Receipt Date: 20100909
  Transmission Date: 20110219
  Serious: Yes (Other)
  Sender: FDA-Public Use
  Company Number: PHHY2010CA59806

PATIENT
  Sex: Female

DRUGS (1)
  1. ACLASTA [Suspect]
     Dosage: ONCE A YEAR
     Route: 042
     Dates: start: 20090728

REACTIONS (6)
  - BILIARY NEOPLASM [None]
  - CHOLELITHIASIS [None]
  - FOOT FRACTURE [None]
  - HAEMATURIA [None]
  - POLYP [None]
  - SURGERY [None]
